FAERS Safety Report 5623026-9 (Version None)
Quarter: 2008Q1

REPORT INFORMATION
  Report Type: 
  Country: None (occurrence: None)
  Receive Date: 20080212
  Receipt Date: 20080129
  Transmission Date: 20080703
  Serious: Yes (Hospitalization)
  Sender: FDA-Public Use
  Company Number: BE-AMGEN-US264124

PATIENT
  Age: 46 Year
  Sex: Female
  Weight: 50 kg

DRUGS (10)
  1. ENBREL [Suspect]
     Indication: RHEUMATOID ARTHRITIS
     Route: 058
     Dates: start: 20060404, end: 20070831
  2. ARAVA [Suspect]
     Indication: RHEUMATOID ARTHRITIS
     Dosage: NOT PROVIDED
     Route: 065
     Dates: start: 20030212, end: 20070831
  3. TILDIEM [Concomitant]
     Indication: HYPERTENSION
     Dosage: 300 MG
     Route: 048
     Dates: start: 20041127
  4. ZESTRIL [Concomitant]
     Indication: HYPERTENSION
     Dosage: 5 MG / DAY
     Route: 048
     Dates: start: 20050601
  5. ZOCOR [Concomitant]
     Indication: HYPERCHOLESTEROLAEMIA
     Dosage: 20 MG / DAY
     Route: 048
  6. ASAFLOW [Concomitant]
     Indication: ANGINA PECTORIS
     Dosage: NOT PROVIDED
     Route: 048
     Dates: start: 20041124, end: 20070910
  7. ASAFLOW [Concomitant]
     Dosage: 1 PER DAY
     Route: 048
     Dates: start: 20070917
  8. XANAX [Concomitant]
     Indication: ANXIETY
     Dosage: 1/2 TABLET WHEN NEEDED
     Route: 048
     Dates: start: 20041129
  9. LORMETAZEPAM [Concomitant]
     Indication: ANXIETY
     Dosage: 2 MG EVERY EVENING
     Route: 048
     Dates: start: 20041101
  10. NEXIUM [Concomitant]
     Indication: OESOPHAGITIS
     Dosage: 20 MG / DAY
     Route: 048
     Dates: start: 20030611

REACTIONS (2)
  - INTERSTITIAL LUNG DISEASE [None]
  - PULMONARY GRANULOMA [None]
